FAERS Safety Report 8373165 (Version 2)
Quarter: 2013Q1

REPORT INFORMATION
  Report Type: Report from Study
  Country: US (occurrence: US)
  Receive Date: 20120128
  Receipt Date: 20130129
  Transmission Date: 20140127
  Serious: No
  Sender: FDA-Public Use
  Company Number: US-ABBOTT-11P-163-0844065-00

PATIENT
  Sex: Male
  Weight: 90.8 kg

DRUGS (3)
  1. HUMIRA 40 MG/0.8 ML PEN [Suspect]
     Indication: PSORIASIS
     Dates: start: 2008, end: 201008
  2. HUMIRA 40 MG/0.8 ML PEN [Suspect]
     Dates: start: 201012
  3. TOPICAL STEROID CREAM [Concomitant]
     Indication: PSORIASIS

REACTIONS (4)
  - Scar [Recovered/Resolved]
  - Oesophageal candidiasis [Recovered/Resolved]
  - Oral candidiasis [Recovered/Resolved]
  - Drug ineffective [Unknown]
